FAERS Safety Report 19608709 (Version 1)
Quarter: 2021Q3

REPORT INFORMATION
  Report Type: Spontaneous
  Country: US (occurrence: US)
  Receive Date: 20210722
  Receipt Date: 20210722
  Transmission Date: 20211014
  Serious: Yes (Hospitalization)
  Sender: FDA-Public Use
  Company Number: None

PATIENT
  Age: 41 Year
  Sex: Male

DRUGS (1)
  1. TREMFYA [Suspect]
     Active Substance: GUSELKUMAB
     Indication: PSORIASIS
     Dosage: ?          OTHER FREQUENCY:EVERY8WEEKS;?
     Route: 058
     Dates: start: 20210305

REACTIONS (2)
  - Therapy interrupted [None]
  - Spondylitis [None]

NARRATIVE: CASE EVENT DATE: 20210720
